FAERS Safety Report 7952088-9 (Version None)
Quarter: 2011Q4

REPORT INFORMATION
  Report Type: 
  Country: None (occurrence: None)
  Receive Date: 20111201
  Receipt Date: 20111124
  Transmission Date: 20120403
  Serious: Yes (Other)
  Sender: FDA-Public Use
  Company Number: PHHY2010JP87369

PATIENT
  Age: 70 Year
  Sex: Female

DRUGS (3)
  1. PREDNISOLONE [Concomitant]
     Dosage: 25 MG, PER DAY
  2. CYCLOSPORINE [Suspect]
     Indication: APLASIA PURE RED CELL
     Dosage: 3 MG/KG, UNK
     Dates: start: 20011201
  3. AZATHIOPRINE [Concomitant]
     Indication: IMMUNOSUPPRESSION
     Dosage: 50 MG, PER DAY
     Dates: start: 20020401

REACTIONS (2)
  - PNEUMONIA [None]
  - APLASIA PURE RED CELL [None]
